FAERS Safety Report 5769330-5 (Version None)
Quarter: 2008Q2

REPORT INFORMATION
  Report Type: 
  Country: None (occurrence: None)
  Receive Date: 20080610
  Receipt Date: 20080603
  Transmission Date: 20081010
  Serious: Yes (Hospitalization, Other)
  Sender: FDA-Public Use
  Company Number: 163-21880-08050778

PATIENT
  Age: 75 Year
  Sex: Male
  Weight: 75 kg

DRUGS (8)
  1. REVLIMID [Suspect]
     Indication: MULTIPLE MYELOMA
     Dosage: 25 MG, QD ON DAYS 1-21, EVERY 28 DAYS, ORAL; 15 MG, QD ON DAYS 1-21, EVERY 28 DAYS, ORAL
     Route: 048
     Dates: start: 20060125, end: 20060501
  2. REVLIMID [Suspect]
     Indication: MULTIPLE MYELOMA
     Dosage: 25 MG, QD ON DAYS 1-21, EVERY 28 DAYS, ORAL; 15 MG, QD ON DAYS 1-21, EVERY 28 DAYS, ORAL
     Route: 048
     Dates: start: 20060612
  3. DEXAMETHASONE TAB [Suspect]
     Indication: MULTIPLE MYELOMA
     Dosage: 40 MG, QD ON DAYS 1-4, 9-12 AND 17-20, Q 28DAYS UNKNOWN; 20 MG, QD ON DAYS 1-4, 9-12 AND 17-20, Q 28
     Dates: start: 20060125, end: 20060527
  4. DEXAMETHASONE TAB [Suspect]
     Indication: MULTIPLE MYELOMA
     Dosage: 40 MG, QD ON DAYS 1-4, 9-12 AND 17-20, Q 28DAYS UNKNOWN; 20 MG, QD ON DAYS 1-4, 9-12 AND 17-20, Q 28
     Dates: start: 20060612
  5. FLOMAX [Concomitant]
  6. ASPIRIN [Concomitant]
  7. TRICOR [Concomitant]
  8. LEVOXYL [Concomitant]

REACTIONS (7)
  - CHILLS [None]
  - FUNGAL INFECTION [None]
  - HYPONATRAEMIA [None]
  - INFECTION [None]
  - INSOMNIA [None]
  - PYREXIA [None]
  - TREMOR [None]
